FAERS Safety Report 7285144-1 (Version None)
Quarter: 2011Q1

REPORT INFORMATION
  Report Type: 
  Country: None (occurrence: None)
  Receive Date: 20110210
  Receipt Date: 20110203
  Transmission Date: 20110831
  Serious: Yes (Death, Hospitalization)
  Sender: FDA-Public Use
  Company Number: PHHY2011IT08905

PATIENT
  Sex: Male

DRUGS (5)
  1. TASIGNA [Suspect]
     Indication: CHRONIC MYELOID LEUKAEMIA
     Dosage: 800 MG, DAILY
     Route: 048
     Dates: start: 20100706, end: 20101207
  2. NORVASC [Concomitant]
     Dosage: 5 MG, UNK
     Route: 048
  3. HUMALOG [Concomitant]
     Dosage: 100 U/ML, UNK
  4. LUCEN [Concomitant]
     Dosage: 20 MG, UNK
     Route: 048
  5. NITRODERM [Concomitant]
     Dosage: 5 MG, DAILY
     Route: 062

REACTIONS (2)
  - CARDIAC ARREST [None]
  - CARDIAC FAILURE [None]
